FAERS Safety Report 8811503 (Version 1)
Quarter: 2012Q4

REPORT INFORMATION
  Report Type: 
  Country: GR (occurrence: GR)
  Receive Date: 20120927
  Receipt Date: 20120927
  Transmission Date: 20130627
  Serious: Yes (Hospitalization)
  Sender: FDA-Public Use
  Company Number: GR-AMGEN-GRCSP2012060665

PATIENT
  Age: 78 Year
  Sex: Female

DRUGS (3)
  1. PROLIA [Suspect]
     Indication: OSTEOPOROSIS
     Dosage: 60 mg, q6mo
     Dates: start: 201106
  2. T4 [Concomitant]
     Indication: HYPOTHYROIDISM
  3. VASTAREL [Concomitant]

REACTIONS (1)
  - Urinary tract infection [Recovered/Resolved]
